FAERS Safety Report 9854703 (Version 2)
Quarter: 2014Q1

REPORT INFORMATION
  Report Type: Report from Study
  Country: DE (occurrence: DE)
  Receive Date: 20140130
  Receipt Date: 20140224
  Transmission Date: 20141002
  Serious: Yes (Hospitalization)
  Sender: FDA-Public Use
  Company Number: DE-ROCHE-1338414

PATIENT
  Age: 54 Year
  Sex: Female

DRUGS (13)
  1. TOCILIZUMAB [Suspect]
     Indication: RHEUMATOID ARTHRITIS
     Route: 065
     Dates: start: 201204, end: 201209
  2. TOCILIZUMAB [Suspect]
     Route: 065
     Dates: start: 20130325
  3. METHOTREXATE [Suspect]
     Indication: PRODUCT USED FOR UNKNOWN INDICATION
     Route: 065
     Dates: start: 200403, end: 200810
  4. METHOTREXATE [Suspect]
     Route: 065
     Dates: start: 200811
  5. PREDNISONE [Concomitant]
     Route: 065
     Dates: start: 201209
  6. OMEPRAZOL [Concomitant]
  7. SIMVASTATIN [Concomitant]
  8. NEBILET [Concomitant]
  9. ENALAPRIL [Concomitant]
  10. CARMEN (GERMANY) [Concomitant]
  11. LYRICA [Concomitant]
  12. VENLAFAXINE [Concomitant]
  13. ACLASTA [Concomitant]
     Indication: RHEUMATOID ARTHRITIS
     Dosage: 5 DOSES IN TOTAL
     Route: 042
     Dates: start: 200801, end: 201209

REACTIONS (3)
  - Seroma [Recovered/Resolved]
  - Impaired healing [Recovered/Resolved]
  - Intervertebral disc protrusion [Unknown]
